FAERS Safety Report 4681592-4 (Version None)
Quarter: 2005Q2

REPORT INFORMATION
  Report Type: 
  Country: None (occurrence: None)
  Receive Date: 20050602
  Receipt Date: 20050513
  Transmission Date: 20051028
  Serious: Yes (Hospitalization)
  Sender: FDA-Public Use
  Company Number: USA040771676

PATIENT
  Age: 71 Year
  Sex: Female
  Weight: 50 kg

DRUGS (4)
  1. FORTEO [Suspect]
     Indication: OSTEOPOROSIS
     Dosage: 20 UG/1 DAY
     Dates: start: 20040603
  2. PREDNISONE TAB [Concomitant]
  3. CALCIUM AND VITAMIN D [Concomitant]
  4. FOSAMAX [Concomitant]

REACTIONS (19)
  - ACTIVITIES OF DAILY LIVING IMPAIRED [None]
  - ARTHRALGIA [None]
  - ARTHRITIS BACTERIAL [None]
  - ASEPTIC NECROSIS BONE [None]
  - BONE MARROW OEDEMA [None]
  - CONSTIPATION [None]
  - CULTURE POSITIVE [None]
  - DECREASED APPETITE [None]
  - DIFFICULTY IN WALKING [None]
  - DYSURIA [None]
  - JOINT EFFUSION [None]
  - MUSCLE MASS [None]
  - NUCLEAR MAGNETIC RESONANCE IMAGING ABNORMAL [None]
  - OSTEOARTHRITIS [None]
  - PHARMACEUTICAL PRODUCT COMPLAINT [None]
  - POST PROCEDURAL COMPLICATION [None]
  - SLEEP DISORDER [None]
  - STAPHYLOCOCCAL INFECTION [None]
  - WEIGHT DECREASED [None]
